FAERS Safety Report 5207559-5 (Version None)
Quarter: 2007Q1

REPORT INFORMATION
  Report Type: 
  Country: None (occurrence: None)
  Receive Date: 20070112
  Receipt Date: 20070104
  Transmission Date: 20070707
  Serious: Yes (Other)
  Sender: FDA-Public Use
  Company Number: GB-AMGEN-UK205721

PATIENT
  Age: 74 Year
  Sex: Female
  Weight: 45 kg

DRUGS (15)
  1. MIMPARA [Suspect]
     Indication: PRE-EXISTING DISEASE
     Route: 048
     Dates: start: 20060623, end: 20060907
  2. ARANESP [Concomitant]
     Route: 042
  3. CALCIUM ACETATE [Concomitant]
  4. EMLA [Concomitant]
     Route: 061
  5. FOLIC ACID [Concomitant]
     Route: 048
  6. HYDROXOCOBALAMIN [Concomitant]
     Route: 030
  7. LANSOPRAZOLE [Concomitant]
  8. MIDODRINE HYDROCHLORIDE [Concomitant]
     Route: 048
  9. QUININE SULFATE [Concomitant]
     Route: 048
  10. WARFARIN SODIUM [Concomitant]
  11. CALCITONIN-SALMON [Concomitant]
     Route: 048
  12. VALDECOXIB [Concomitant]
     Route: 048
  13. VITAMIN B COMPLEX CAP [Concomitant]
     Route: 048
  14. ALGELDRATE [Concomitant]
  15. E45 [Concomitant]
     Route: 061

REACTIONS (2)
  - DIARRHOEA [None]
  - GENERAL PHYSICAL HEALTH DETERIORATION [None]
